FAERS Safety Report 5158135-4 (Version None)
Quarter: 2006Q4

REPORT INFORMATION
  Report Type: 
  Country: None (occurrence: None)
  Receive Date: 20061127
  Receipt Date: 20061113
  Transmission Date: 20070319
  Serious: Yes (Hospitalization)
  Sender: FDA-Public Use
  Company Number: PHMT2006CA02139

PATIENT
  Sex: Female

DRUGS (2)
  1. NEORAL [Suspect]
  2. ETANERCEPT [Concomitant]

REACTIONS (9)
  - ANAEMIA [None]
  - CONGESTIVE CARDIOMYOPATHY [None]
  - HEPATIC FAILURE [None]
  - HYPOXIA [None]
  - IMMUNE SYSTEM DISORDER [None]
  - PNEUMONIA [None]
  - PSORIASIS [None]
  - RENAL FAILURE [None]
  - RESPIRATORY FAILURE [None]
